FAERS Safety Report 7962293-3 (Version None)
Quarter: 2011Q4

REPORT INFORMATION
  Report Type: 
  Country: None (occurrence: None)
  Receive Date: 20111207
  Receipt Date: 20111128
  Transmission Date: 20120403
  Serious: Yes (Hospitalization)
  Sender: FDA-Public Use
  Company Number: US-CUBIST-2011S1000851

PATIENT

DRUGS (1)
  1. CUBICIN [Suspect]
     Indication: OSTEOMYELITIS
     Route: 065

REACTIONS (3)
  - OSTEOMYELITIS [None]
  - ANTIMICROBIAL SUSCEPTIBILITY TEST RESISTANT [None]
  - STAPHYLOCOCCAL INFECTION [None]
